FAERS Safety Report 4493196-7 (Version None)
Quarter: 2004Q4

REPORT INFORMATION
  Report Type: 
  Country: None (occurrence: None)
  Receive Date: 20041029
  Receipt Date: 20041025
  Transmission Date: 20050328
  Serious: Yes (Hospitalization)
  Sender: FDA-Public Use
  Company Number: 04H-163-0269778-00

PATIENT
  Age: 62 Year
  Sex: Male

DRUGS (3)
  1. BUPIVACAINE HCL 0.5% INJECTION, USP, TT VIAL (BUPIVACAINE HYDROCHLORID [Suspect]
     Indication: ANAESTHESIA
     Dosage: 0.5 CC, ONCE, SUBCUTANEOUS
     Route: 058
     Dates: start: 20040804, end: 20040804
  2. METHYLPREDNISOLONE [Suspect]
     Indication: ANALGESIC EFFECT
     Dosage: 0.5 CC, ONCE, INTRA-ARTICULAR
     Route: 014
     Dates: start: 20040804, end: 20040804
  3. BUPIVACAINE HCL 0.5% INJECTION, USP, TT VIAL (BUPIVACAINE HYDROCHLORID [Suspect]
     Indication: ANALGESIC EFFECT
     Dosage: 0.5 CC, ONCE, INTRA-ARTICULAR
     Route: 014
     Dates: start: 20040804, end: 20040804

REACTIONS (3)
  - ERYTHEMA [None]
  - PAIN [None]
  - SWELLING [None]
